FAERS Safety Report 8870367 (Version 1)
Quarter: 2012Q4

REPORT INFORMATION
  Report Type: Spontaneous
  Country: US (occurrence: None)
  Receive Date: 20121026
  Receipt Date: 20121026
  Transmission Date: 20130627
  Serious: Yes (Other)
  Sender: FDA-Public Use
  Company Number: None

PATIENT
  Age: 21 Year
  Sex: Male
  Weight: 86.18 kg

DRUGS (1)
  1. LEVETIRACETAM [Suspect]
     Indication: INTRACTABLE EPILEPSY
     Dosage: 3-4 months
     Route: 048

REACTIONS (3)
  - Convulsion [None]
  - Product substitution issue [None]
  - Treatment failure [None]
